FAERS Safety Report 7614517-X (Version None)
Quarter: 2011Q3

REPORT INFORMATION
  Report Type: 
  Country: None (occurrence: None)
  Receive Date: 20110708
  Receipt Date: 20110422
  Transmission Date: 20111222
  Serious: No
  Sender: FDA-Public Use
  Company Number: 2011IP000077

PATIENT
  Age: 55 Year
  Sex: Female

DRUGS (2)
  1. LISINOPRIL [Concomitant]
  2. BEPREVE [Suspect]
     Indication: EYELID OEDEMA
     Dosage: 1 GTT;BID;OPH
     Route: 047
     Dates: start: 20110421, end: 20110422

REACTIONS (3)
  - MYDRIASIS [None]
  - PALPITATIONS [None]
  - BLOOD PRESSURE INCREASED [None]
